FAERS Safety Report 8598313-5 (Version None)
Quarter: 2012Q3

REPORT INFORMATION
  Report Type: 
  Country: None (occurrence: None)
  Receive Date: 20120806
  Receipt Date: 20120806
  Transmission Date: 20120928
  Serious: No
  Sender: FDA-Public Use
  Company Number: None

PATIENT
  Age: 43 Year
  Sex: Male
  Weight: 113.3993 kg

DRUGS (1)
  1. CRESTOR [Suspect]
     Indication: ARTERITIS
     Dosage: PILL/TABLET, 1 PILL DAILY, PO
     Route: 048

REACTIONS (1)
  - MUSCULOSKELETAL DISCOMFORT [None]
